FAERS Safety Report 7915101-0 (Version None)
Quarter: 2011Q4

REPORT INFORMATION
  Report Type: 
  Country: None (occurrence: None)
  Receive Date: 20111115
  Receipt Date: 20111108
  Transmission Date: 20120403
  Serious: Yes (Hospitalization, Disabling, Other)
  Sender: FDA-Public Use
  Company Number: US-MERCK-1103USA00980

PATIENT
  Age: 63 Year
  Sex: Male

DRUGS (1)
  1. FOSAMAX [Suspect]
     Indication: OSTEOPOROSIS
     Route: 048
     Dates: start: 19980301, end: 20080301

REACTIONS (43)
  - CAROTID ARTERY DISEASE [None]
  - OSTEONECROSIS [None]
  - HYPERTENSION [None]
  - CHRONIC OBSTRUCTIVE PULMONARY DISEASE [None]
  - OSTEONECROSIS OF JAW [None]
  - PROSTATE CANCER [None]
  - FISTULA [None]
  - OESOPHAGEAL CANDIDIASIS [None]
  - PAIN [None]
  - DYSPEPSIA [None]
  - CANDIDIASIS [None]
  - ORAL INFECTION [None]
  - OSTEOMYELITIS [None]
  - CAROTID BRUIT [None]
  - IMPAIRED HEALING [None]
  - SUBCLAVIAN ARTERY STENOSIS [None]
  - GINGIVITIS ULCERATIVE [None]
  - HYPERLIPIDAEMIA [None]
  - DRUG HYPERSENSITIVITY [None]
  - OSTEOPENIA [None]
  - DEVICE FAILURE [None]
  - VENTRICULAR TACHYCARDIA [None]
  - STOMATITIS [None]
  - GASTROOESOPHAGEAL REFLUX DISEASE [None]
  - LYMPHADENOPATHY [None]
  - JAW FRACTURE [None]
  - HERNIA [None]
  - PERIODONTAL DISEASE [None]
  - GINGIVAL DISORDER [None]
  - ANAEMIA OF CHRONIC DISEASE [None]
  - MYOCARDIAL INFARCTION [None]
  - PERIPHERAL VASCULAR DISORDER [None]
  - BONE LOSS [None]
  - PNEUMONIA [None]
  - GASTRIC ULCER [None]
  - TOOTH INFECTION [None]
  - NIGHT SWEATS [None]
  - FISTULA DISCHARGE [None]
  - THROMBOCYTOPENIA [None]
  - JAW DISORDER [None]
  - ABSCESS JAW [None]
  - TOOTH LOSS [None]
  - SWELLING [None]
